FAERS Safety Report 24662765 (Version 1)
Quarter: 2024Q4

REPORT INFORMATION
  Report Type: Spontaneous
  Country: GB (occurrence: GB)
  Receive Date: 20241126
  Receipt Date: 20241126
  Transmission Date: 20250115
  Serious: No
  Sender: ALKEM
  Company Number: None

PATIENT
  Age: 66 Year
  Sex: Female
  Weight: 60 kg

DRUGS (8)
  1. COLESEVELAM HYDROCHLORIDE [Suspect]
     Active Substance: COLESEVELAM HYDROCHLORIDE
     Indication: Product used for unknown indication
     Dosage: 625 MILLIGRAM, TID (8 HOURS), TABLET
     Route: 065
     Dates: start: 20230926
  2. AMLODIPINE [Concomitant]
     Active Substance: AMLODIPINE BESYLATE
     Indication: Product used for unknown indication
     Dosage: 1 DOSAGE FORM, QD (1 DAILY DOSE)
     Route: 065
     Dates: start: 20230609
  3. ATORVASTATIN [Concomitant]
     Active Substance: ATORVASTATIN
     Indication: Product used for unknown indication
     Dosage: 1 DOSAGE FORM, HS (AT NIGHT / 1 DAILY DOSE)
     Route: 065
     Dates: start: 20230609
  4. CHOLESTYRAMINE [Concomitant]
     Active Substance: CHOLESTYRAMINE
     Indication: Product used for unknown indication
     Dosage: UNK, TAKE 1 IN THE MORNING, INCREASE TO 2 SACHETS AF...
     Route: 065
     Dates: start: 20231009
  5. ESTRADIOL [Concomitant]
     Active Substance: ESTRADIOL
     Indication: Product used for unknown indication
     Dosage: UNK, APPLY ONE WEEKLY
     Route: 065
     Dates: start: 20220324
  6. BUTYLSCOPOLAMINE BROMIDE [Concomitant]
     Active Substance: BUTYLSCOPOLAMINE BROMIDE
     Indication: Product used for unknown indication
     Dosage: UNK, PRN, TAKE 1 TO BE TAKEN THREE TIMES DAILY PRN
     Route: 065
     Dates: start: 20230609
  7. LANSOPRAZOLE [Concomitant]
     Active Substance: LANSOPRAZOLE
     Indication: Product used for unknown indication
     Dosage: 1 DOSAGE FORM, QD (1 DAILY DOSE)
     Route: 065
     Dates: start: 20230609
  8. TRIAMCINOLONE ACETONIDE [Concomitant]
     Active Substance: TRIAMCINOLONE ACETONIDE
     Indication: Product used for unknown indication
     Dosage: UNK, 5MG - 40MG DEPENDING ON JOINT SIZE - SEE PGD FO...
     Route: 065
     Dates: start: 20230911, end: 20230912

REACTIONS (2)
  - Abdominal distension [Recovered/Resolved]
  - Headache [Recovered/Resolved]
